FAERS Safety Report 5938629-1 (Version None)
Quarter: 2008Q4

REPORT INFORMATION
  Report Type: 
  Country: None (occurrence: None)
  Receive Date: 20081103
  Receipt Date: 20081020
  Transmission Date: 20090506
  Serious: Yes (Other)
  Sender: FDA-Public Use
  Company Number: IT-ROCHE-594291

PATIENT
  Age: 50 Year
  Sex: Male

DRUGS (9)
  1. MYCOPHENOLATE MOFETIL [Suspect]
     Indication: PROPHYLAXIS
     Dosage: X3
     Route: 065
  2. SULFAMETHOXAZOLE AND TRIMETHOPRIM [Suspect]
     Route: 048
  3. TACROLIMUS [Suspect]
     Indication: PROPHYLAXIS
     Dosage: 0.5 + 0.5MG
     Route: 048
  4. CYCLOSPORINE [Suspect]
     Indication: PROPHYLAXIS
     Dosage: 100 + 100MG
     Route: 065
  5. STEROID NOS [Suspect]
     Indication: PROPHYLAXIS
     Route: 065
  6. TENOFOVIR [Suspect]
     Indication: HIV INFECTION
     Route: 065
  7. ABACAVIR [Suspect]
     Indication: HIV INFECTION
     Route: 065
  8. ATAZANAVIR SULFATE [Suspect]
     Indication: HIV INFECTION
     Route: 065
  9. FLUCONAZOLE [Suspect]
     Indication: ANTIFUNGAL PROPHYLAXIS
     Route: 065

REACTIONS (3)
  - NEUROTOXICITY [None]
  - TRANSPLANT REJECTION [None]
  - VIRAL INFECTION [None]
